FAERS Safety Report 6164361-8 (Version None)
Quarter: 2009Q2

REPORT INFORMATION
  Report Type: 
  Country: None (occurrence: None)
  Receive Date: 20090421
  Receipt Date: 20090413
  Transmission Date: 20091009
  Serious: Yes (Other)
  Sender: FDA-Public Use
  Company Number: DSA_33503_2009

PATIENT
  Age: 86 Year
  Sex: Male

DRUGS (1)
  1. CARDIZEM LA [Suspect]
     Indication: HYPERTENSION
     Dosage: (DF ORAL)
     Route: 048

REACTIONS (1)
  - IDIOPATHIC PULMONARY FIBROSIS [None]
